FAERS Safety Report 13351196 (Version 1)
Quarter: 2017Q1

REPORT INFORMATION
  Report Type: Spontaneous
  Country: CN (occurrence: CN)
  Receive Date: 20170320
  Receipt Date: 20170320
  Transmission Date: 20170429
  Serious: Yes (Death)
  Sender: FDA-Public Use
  Company Number: CN-OTSUKA-2017_006354

PATIENT

DRUGS (10)
  1. ATG RABBIT [Suspect]
     Active Substance: LAPINE T-LYMPHOCYTE IMMUNE GLOBULIN
     Indication: STEM CELL TRANSPLANT
     Dosage: 2.5 MG/KG, QD (2.5 MG/KG, ONCE DAILY ON DAYS -5 TO -2, TOTAL DOSE 10 MG/KG)
     Route: 042
  2. CYCLOPHOSPHAMIDE. [Suspect]
     Active Substance: CYCLOPHOSPHAMIDE
     Indication: STEM CELL TRANSPLANT
     Dosage: 50 MG/KG, QD (50 MG/KG, ONCE DAILY ON DAYS -5 TO -2, TOTAL DOSE 200 MG/KG)
     Route: 042
  3. CYCLOSPORIN A [Concomitant]
     Active Substance: CYCLOSPORINE
     Dosage: UNK
     Route: 048
  4. CYCLOSPORIN A [Concomitant]
     Active Substance: CYCLOSPORINE
     Indication: PROPHYLAXIS AGAINST GRAFT VERSUS HOST DISEASE
     Dosage: 1.5 MG/KG, BID (FROM DAY -9 TO UNTILL THE PATIENT^S GASTROENTERIC FUNCTION RETURNED TO NORMAL)
     Route: 042
  5. G-CSF [Concomitant]
     Active Substance: GRANULOCYTE COLONY-STIMULATING FACTOR NOS
     Indication: PRODUCT USED FOR UNKNOWN INDICATION
     Dosage: 5 ?G/KG, QD  (FROM DAY +6 UNTIL MYELOID RECOVERY)
     Route: 065
  6. BUSULFEX [Suspect]
     Active Substance: BUSULFAN
     Indication: STEM CELL TRANSPLANT
     Dosage: 0.8 MG/KG, QID (0.8 MG/KG EVERY 6 H ON DAYS -7 AND -6, TOTAL DOSE 6.4MG/KG)
     Route: 042
  7. MYCOPHENOLATE MOFETIL. [Concomitant]
     Active Substance: MYCOPHENOLATE MOFETIL
     Indication: PROPHYLAXIS AGAINST GRAFT VERSUS HOST DISEASE
     Dosage: 250-500MG EVERY 12 H, FROM DAY -9 TO DAY +30
     Route: 065
  8. METHOTREXATE. [Concomitant]
     Active Substance: METHOTREXATE
     Dosage: 10MG/M2 ON DAY +3, +6 AND +11
     Route: 042
  9. METHOTREXATE. [Concomitant]
     Active Substance: METHOTREXATE
     Indication: PROPHYLAXIS AGAINST GRAFT VERSUS HOST DISEASE
     Dosage: 15MG/M2 ON DAY +1
     Route: 042
  10. HUMAN IG [Concomitant]
     Indication: PRODUCT USED FOR UNKNOWN INDICATION
     Dosage: 400 MG/KG, UNK (ON DAYS +1, +11, +21 AND +31)
     Route: 042

REACTIONS (4)
  - Renal injury [Fatal]
  - Acute myocardial infarction [Fatal]
  - Toxicity to various agents [Fatal]
  - Gastrointestinal injury [Fatal]
